FAERS Safety Report 20840156 (Version 2)
Quarter: 2022Q2

REPORT INFORMATION
  Report Type: Spontaneous
  Country: US (occurrence: US)
  Receive Date: 20220517
  Receipt Date: 20220614
  Transmission Date: 20220721
  Serious: No
  Sender: FDA-Public Use
  Company Number: US-PFIZER INC-202200680906

PATIENT
  Age: 63 Year
  Sex: Female

DRUGS (1)
  1. XELJANZ [Suspect]
     Active Substance: TOFACITINIB CITRATE
     Indication: Rheumatoid arthritis
     Dosage: 5 MG, 2X/DAY
     Route: 048
     Dates: start: 20220417

REACTIONS (8)
  - Product dose omission in error [Unknown]
  - Fatigue [Unknown]
  - Discouragement [Unknown]
  - Depressed mood [Unknown]
  - Pain in extremity [Unknown]
  - Pain in extremity [Unknown]
  - Peripheral swelling [Unknown]
  - Peripheral swelling [Unknown]
